FAERS Safety Report 26158952 (Version 2)
Quarter: 2025Q4

REPORT INFORMATION
  Report Type: Spontaneous
  Country: US (occurrence: US)
  Receive Date: 20251215
  Receipt Date: 20251215
  Transmission Date: 20260118
  Serious: Yes (Hospitalization)
  Sender: ROCHE
  Company Number: US-ROCHE-10000455601

PATIENT
  Sex: Female

DRUGS (1)
  1. TECENTRIQ [Suspect]
     Active Substance: ATEZOLIZUMAB
     Indication: Hepatocellular carcinoma

REACTIONS (10)
  - Chills [Unknown]
  - Myalgia [Unknown]
  - Thirst [Unknown]
  - Pollakiuria [Unknown]
  - Headache [Unknown]
  - Confusional state [Unknown]
  - Aphasia [Unknown]
  - Pain [Unknown]
  - Blood sodium decreased [Unknown]
  - Hyperhidrosis [Unknown]
